FAERS Safety Report 9523889 (Version 1)
Quarter: 2013Q1

REPORT INFORMATION
  Report Type: Spontaneous
  Country: US (occurrence: None)
  Receive Date: 20130305
  Receipt Date: 20130305
  Transmission Date: 20140127
  Serious: Yes (Other)
  Sender: FDA-Public Use
  Company Number: 163-21880-12031752

PATIENT
  Age: 59 Year
  Sex: Male
  Weight: 88.45 kg

DRUGS (5)
  1. REVLIMID (LENALIDOMIDE) (CAPSULES) [Suspect]
     Indication: PLASMA CELL MYELOMA
     Dosage: DAILY X 21 DAYS , 7 DAYS OFF
     Route: 048
     Dates: start: 20111108
  2. DEXAMETHASONE (DEXAMETHASONE) [Concomitant]
  3. DOXYCYCLINE (DOXYCYCLINE) [Concomitant]
  4. EXFORGE (AMLODIPINE W/VALSARTAN) [Concomitant]
  5. BYSTOLIC (NESIVOLOL HYDROCHLORIDE) [Concomitant]

REACTIONS (1)
  - Thrombosis [None]
